FAERS Safety Report 25475648 (Version 2)
Quarter: 2025Q4

REPORT INFORMATION
  Report Type: Report from Study
  Country: US (occurrence: US)
  Receive Date: 20250624
  Receipt Date: 20251016
  Transmission Date: 20260118
  Serious: No
  Sender: MERCK SHARP & DOHME LLC
  Company Number: US-009507513-2257989

PATIENT
  Age: 54 Year
  Sex: Female

DRUGS (3)
  1. BELSOMRA [Suspect]
     Active Substance: SUVOREXANT
     Dosage: TAKE 1 TABLET EVERY NIGHT AT BEDTIME, STRENGTH: 20 MG
     Route: 048
     Dates: end: 20250123
  2. BELSOMRA [Suspect]
     Active Substance: SUVOREXANT
     Dosage: TAKE ONE TABLET BY MOUTH EVERY NIGHT AT BEDTIME,STRENGTH: 20 MG
     Route: 048
     Dates: start: 20250224
  3. BELSOMRA [Suspect]
     Active Substance: SUVOREXANT
     Dosage: TAKE ONE TABLET BY MOUTH AT BEDTIME, STRENGTH: 20 MG
     Route: 048
     Dates: end: 20250929

REACTIONS (3)
  - Insomnia [Unknown]
  - Product dose omission issue [Unknown]
  - Product use issue [Unknown]

NARRATIVE: CASE EVENT DATE: 20241219
